FAERS Safety Report 4837430-X (Version None)
Quarter: 2005Q4

REPORT INFORMATION
  Report Type: 
  Country: None (occurrence: None)
  Receive Date: 20051128
  Receipt Date: 20051118
  Transmission Date: 20060501
  Serious: Yes (Other)
  Sender: FDA-Public Use
  Company Number: DE-JNJFOC-20050804348

PATIENT
  Sex: Male
  Weight: 69 kg

DRUGS (13)
  1. DURAGESIC-100 [Suspect]
     Route: 062
  2. DURAGESIC-100 [Suspect]
     Route: 062
  3. VIGANTOLETTEN 500 [Concomitant]
     Route: 065
  4. DECORTIN [Concomitant]
     Route: 065
  5. NEXIUM [Concomitant]
     Route: 065
  6. CITALOPRAM [Concomitant]
     Route: 065
  7. LASIX [Concomitant]
     Route: 065
  8. BRONCHORETARD [Concomitant]
     Route: 065
  9. SPIRIVA [Concomitant]
     Route: 065
  10. FORADIL [Concomitant]
     Route: 065
  11. SYMBICORT [Concomitant]
     Route: 065
  12. SYMBICORT [Concomitant]
     Route: 065
  13. NOVAMINSULFON [Concomitant]
     Route: 065

REACTIONS (3)
  - NAUSEA [None]
  - SUICIDAL IDEATION [None]
  - VOMITING [None]
